FAERS Safety Report 9753603 (Version 1)
Quarter: 2013Q4

REPORT INFORMATION
  Report Type: Spontaneous
  Country: US (occurrence: None)
  Receive Date: 20131211
  Receipt Date: 20131211
  Transmission Date: 20140711
  Serious: Yes (Hospitalization)
  Sender: FDA-Public Use
  Company Number: AUR-APL-2013-10324

PATIENT
  Age: 78 Year
  Sex: Female

DRUGS (1)
  1. TRIMETHOPRIM + SULFAMETHOXAZOLE [Suspect]
     Indication: HUMAN EHRLICHIOSIS

REACTIONS (10)
  - Myocarditis [None]
  - Syncope [None]
  - Pulmonary congestion [None]
  - Arteriosclerosis [None]
  - Cardiac failure [None]
  - Myalgia [None]
  - White blood cell count decreased [None]
  - Platelet count decreased [None]
  - Aspartate aminotransferase increased [None]
  - Alanine aminotransferase increased [None]
